FAERS Safety Report 8308441-7 (Version None)
Quarter: 2012Q2

REPORT INFORMATION
  Report Type: 
  Country: None (occurrence: None)
  Receive Date: 20120420
  Receipt Date: 20120403
  Transmission Date: 20120825
  Serious: Yes (Other)
  Sender: FDA-Public Use
  Company Number: 2012P1012067

PATIENT
  Age: 51 Year
  Sex: Male

DRUGS (2)
  1. MINITRAN [Suspect]
     Indication: CARDIAC DISORDER
     Dosage: X1;TOP
     Route: 061
  2. MINITRAN [Suspect]
     Indication: MUSCLE STRAIN
     Dosage: X1;TOP
     Route: 061

REACTIONS (1)
  - POSTERIOR REVERSIBLE ENCEPHALOPATHY SYNDROME [None]
